FAERS Safety Report 6107834-6 (Version None)
Quarter: 2009Q1

REPORT INFORMATION
  Report Type: 
  Country: None (occurrence: None)
  Receive Date: 20090309
  Receipt Date: 20090227
  Transmission Date: 20090719
  Serious: Yes (Other)
  Sender: FDA-Public Use
  Company Number: ES-BRISTOL-MYERS SQUIBB COMPANY-14534119

PATIENT
  Age: 58 Year
  Sex: Male

DRUGS (5)
  1. ERBITUX [Suspect]
     Indication: COLON CANCER
  2. BEVACIZUMAB [Suspect]
     Indication: COLON CANCER
  3. FOLINIC ACID [Suspect]
     Indication: COLON CANCER
  4. FLUOROURACIL [Suspect]
     Indication: COLON CANCER
  5. IRINOTECAN HCL [Suspect]
     Indication: COLON CANCER

REACTIONS (2)
  - HAEMOLYTIC ANAEMIA [None]
  - RENAL FAILURE [None]
